FAERS Safety Report 8185375-2 (Version None)
Quarter: 2012Q1

REPORT INFORMATION
  Report Type: 
  Country: None (occurrence: None)
  Receive Date: 20120305
  Receipt Date: 20120221
  Transmission Date: 20120608
  Serious: Yes (Hospitalization, Congenital Anomaly)
  Sender: FDA-Public Use
  Company Number: US-ROCHE-GNE313226

PATIENT
  Sex: Male
  Weight: 2.03 kg

DRUGS (2)
  1. OMALIZUMAB [Suspect]
     Indication: ASTHMA
     Dosage: 150 MG, Q4W
     Route: 064
  2. ANTIBIOTIC EYE DROPS (UNK INGREDIENTS) [Concomitant]
     Indication: CONJUNCTIVITIS

REACTIONS (2)
  - LACRIMAL DISORDER [None]
  - PREMATURE BABY [None]
